FAERS Safety Report 4382095-7 (Version None)
Quarter: 2004Q2

REPORT INFORMATION
  Report Type: 
  Country: None (occurrence: None)
  Receive Date: 20040615
  Receipt Date: 20040603
  Transmission Date: 20050107
  Serious: No
  Sender: FDA-Public Use
  Company Number: 04P-163-0262668-00

PATIENT
  Age: 67 Year
  Sex: Female
  Weight: 62.1428 kg

DRUGS (13)
  1. HUMIRA [Suspect]
     Indication: RHEUMATOID ARTHRITIS
     Dosage: 40 MG, 1 IN 2 WK, SUBCUTANEOUS
     Route: 058
     Dates: start: 20030101, end: 20030101
  2. HUMIRA [Suspect]
     Indication: RHEUMATOID ARTHRITIS
     Dosage: 40 MG, 1 IN 2 WK, SUBCUTANEOUS
     Route: 058
     Dates: start: 20040101
  3. LEVOTHYROXINE SODIUM [Concomitant]
  4. LOTREL [Concomitant]
  5. CLONIDINE HCL [Concomitant]
  6. SULFASALAZINE [Concomitant]
  7. TRAMADOL HYDROCHLORIDE [Concomitant]
  8. CALCIUM CARBONATE [Concomitant]
  9. MULTIVITAMIN [Concomitant]
  10. PROVELLA-14 [Concomitant]
  11. CELECOXIB [Concomitant]
  12. TOCOPHEROL CONCENTRATE CAP [Concomitant]
  13. ERGOCALCIFEROL [Concomitant]

REACTIONS (3)
  - BLOOD CREATININE INCREASED [None]
  - CARPAL TUNNEL SYNDROME [None]
  - HYPOAESTHESIA [None]
